FAERS Safety Report 6716418-8 (Version None)
Quarter: 2010Q2

REPORT INFORMATION
  Report Type: 
  Country: None (occurrence: None)
  Receive Date: 20100507
  Receipt Date: 20100502
  Transmission Date: 20101027
  Serious: Yes (Hospitalization, Other)
  Sender: FDA-Public Use
  Company Number: CA-ABBOTT-09P-028-0496582-00

PATIENT
  Sex: Male
  Weight: 62.652 kg

DRUGS (4)
  1. HUMIRA [Suspect]
     Indication: CROHN'S DISEASE
     Route: 058
     Dates: start: 20080114, end: 20080701
  2. CIPRO [Concomitant]
     Indication: DRUG USE FOR UNKNOWN INDICATION
  3. METRONIDAZOLE [Concomitant]
     Indication: DRUG USE FOR UNKNOWN INDICATION
  4. PREDNISONE [Concomitant]
     Indication: DRUG USE FOR UNKNOWN INDICATION

REACTIONS (9)
  - COLECTOMY [None]
  - CROHN'S DISEASE [None]
  - DEPRESSION [None]
  - FREQUENT BOWEL MOVEMENTS [None]
  - ILL-DEFINED DISORDER [None]
  - INTESTINAL STOMA [None]
  - PAIN [None]
  - WEIGHT DECREASED [None]
  - WOUND [None]
